FAERS Safety Report 7469930-0 (Version None)
Quarter: 2011Q2

REPORT INFORMATION
  Report Type: 
  Country: None (occurrence: None)
  Receive Date: 20110510
  Receipt Date: 20110506
  Transmission Date: 20111010
  Serious: Yes (Death, Hospitalization, Other)
  Sender: FDA-Public Use
  Company Number: GR-ROCHE-769827

PATIENT
  Sex: Male
  Weight: 76 kg

DRUGS (3)
  1. INTERFERON ALFA [Suspect]
     Indication: METASTATIC RENAL CELL CARCINOMA
     Dosage: LAST DOSE PRIOR TO SAE: 04 APRIL 2011.PERMANENTLY DISCONTINUED: 04 APR 2011
     Route: 065
     Dates: start: 20091215, end: 20110404
  2. NITRONG [Concomitant]
     Dosage: TTD: 5, REPORTED AS TTS NITRONG
     Dates: start: 20091215, end: 20110422
  3. AVASTIN [Suspect]
     Indication: METASTATIC RENAL CELL CARCINOMA
     Dosage: LAST DOSE PRIOR TO SAE: 24 MARCH 2009.PERMANENTLY DISCONTINUED: 04 APR 2011.
     Route: 042
     Dates: start: 20091215, end: 20110404

REACTIONS (3)
  - CARDIAC ARREST [None]
  - ABSCESS [None]
  - HYPONATRAEMIA [None]
